FAERS Safety Report 20329849 (Version 2)
Quarter: 2025Q4

REPORT INFORMATION
  Report Type: Spontaneous
  Country: EU (occurrence: EU)
  Receive Date: 20220112
  Receipt Date: 20251022
  Transmission Date: 20260117
  Serious: Yes (Hospitalization, Other)
  Sender: AUROBINDO
  Company Number: EU-GEN-2021-1503

PATIENT
  Age: 17 Year
  Sex: Female
  Weight: 92.5 kg

DRUGS (6)
  1. ARIPIPRAZOLE [Suspect]
     Active Substance: ARIPIPRAZOLE
     Indication: Schizophrenia
     Dosage: 30 MILLIGRAM, ONCE A DAY
     Route: 065
  2. FLUOXETINE [Suspect]
     Active Substance: FLUOXETINE HYDROCHLORIDE
     Indication: Schizophrenia
     Dosage: 20 MILLIGRAM, ONCE A DAY
     Route: 065
  3. OLANZAPINE [Suspect]
     Active Substance: OLANZAPINE
     Indication: Schizophrenia
     Dosage: 20 MILLIGRAM, ONCE A DAY
     Route: 065
  4. SERTRALINE [Suspect]
     Active Substance: SERTRALINE HYDROCHLORIDE
     Indication: Schizophrenia
     Dosage: 50 MILLIGRAM, ONCE A DAY
     Route: 065
  5. SERTRALINE [Suspect]
     Active Substance: SERTRALINE HYDROCHLORIDE
     Dosage: 150 MILLIGRAM, ONCE A DAY
     Route: 065
  6. PERPHENAZINE [Suspect]
     Active Substance: PERPHENAZINE
     Indication: Schizophrenia
     Dosage: 200 MILLIGRAM, ONCE A DAY
     Route: 065

REACTIONS (19)
  - Disturbance in attention [Recovering/Resolving]
  - Enuresis [Recovering/Resolving]
  - Tremor [Recovering/Resolving]
  - Abnormal behaviour [Recovering/Resolving]
  - Asocial behaviour [Recovering/Resolving]
  - Flat affect [Recovering/Resolving]
  - Suicidal ideation [Recovering/Resolving]
  - Extrapyramidal disorder [Recovering/Resolving]
  - Anxiety [Recovering/Resolving]
  - Hallucination, auditory [Recovering/Resolving]
  - Negative thoughts [Recovering/Resolving]
  - Initial insomnia [Recovering/Resolving]
  - Depressed mood [Recovering/Resolving]
  - Memory impairment [Recovering/Resolving]
  - Akathisia [Recovering/Resolving]
  - Ideas of reference [Recovering/Resolving]
  - Weight increased [Recovering/Resolving]
  - Soliloquy [Recovering/Resolving]
  - Drug ineffective [Recovering/Resolving]
